FAERS Safety Report 24546680 (Version 1)
Quarter: 2024Q4

REPORT INFORMATION
  Report Type: Spontaneous
  Country: CN (occurrence: CN)
  Receive Date: 20241024
  Receipt Date: 20241024
  Transmission Date: 20250114
  Serious: Yes (Hospitalization, Other)
  Sender: MERCK
  Company Number: CN-009507513-2410CHN009987

PATIENT
  Age: 43 Year
  Sex: Male
  Weight: 70 kg

DRUGS (4)
  1. INVANZ [Suspect]
     Active Substance: ERTAPENEM SODIUM
     Indication: Appendicitis
     Dosage: 1 G, BID, IV DRIP
     Route: 041
     Dates: start: 20241007, end: 20241011
  2. INVANZ [Suspect]
     Active Substance: ERTAPENEM SODIUM
     Indication: Infection prophylaxis
     Dosage: 1 G, QD, IV DRIP
     Route: 041
     Dates: start: 20241011
  3. SODIUM CHLORIDE [Concomitant]
     Active Substance: SODIUM CHLORIDE
     Indication: Medication dilution
     Dosage: 100 ML, BID, IV DRIP
     Route: 041
     Dates: start: 20241007, end: 20241011
  4. SODIUM CHLORIDE [Concomitant]
     Active Substance: SODIUM CHLORIDE
     Indication: Infection prophylaxis

REACTIONS (2)
  - Hepatic function abnormal [Recovering/Resolving]
  - Product use in unapproved indication [Unknown]

NARRATIVE: CASE EVENT DATE: 20241007
